FAERS Safety Report 19007619 (Version 1)
Quarter: 2021Q1

REPORT INFORMATION
  Report Type: Other
  Country: US (occurrence: US)
  Receive Date: 20210315
  Receipt Date: 20210315
  Transmission Date: 20210420
  Serious: Yes (Hospitalization, Other)
  Sender: FDA-Public Use
  Company Number: US-ROCHE-2059174

PATIENT
  Age: 41 Year
  Sex: Female
  Weight: 53.12 kg

DRUGS (13)
  1. OCREVUS [Suspect]
     Active Substance: OCRELIZUMAB
     Route: 042
     Dates: start: 201708
  2. OCREVUS [Suspect]
     Active Substance: OCRELIZUMAB
     Route: 042
     Dates: start: 20170807
  3. AMPYRA [Concomitant]
     Active Substance: DALFAMPRIDINE
     Route: 048
  4. TYLENOL [Concomitant]
     Active Substance: ACETAMINOPHEN
  5. MEMANTINE. [Concomitant]
     Active Substance: MEMANTINE
     Indication: NYSTAGMUS
     Dosage: TAKES 2 DAILY
     Route: 048
  6. LISINOPRIL. [Concomitant]
     Active Substance: LISINOPRIL
     Indication: HYPERTENSION
     Route: 048
  7. MOTRIN [Concomitant]
     Active Substance: IBUPROFEN
  8. OCREVUS [Suspect]
     Active Substance: OCRELIZUMAB
     Dosage: 06/AUG/2018, 11/FEB/2019, 26/AUG/2019, 24/FEB/2020
     Route: 042
     Dates: start: 20180205
  9. OCREVUS [Suspect]
     Active Substance: OCRELIZUMAB
     Indication: SECONDARY PROGRESSIVE MULTIPLE SCLEROSIS
     Dosage: ONGOING: YES
     Route: 042
     Dates: start: 20170829
  10. AMPYRA [Concomitant]
     Active Substance: DALFAMPRIDINE
     Route: 048
     Dates: start: 2014
  11. TIZANIDINE. [Concomitant]
     Active Substance: TIZANIDINE
     Indication: MUSCLE SPASMS
     Route: 048
  12. ADVIL [Concomitant]
     Active Substance: IBUPROFEN
  13. OCREVUS [Suspect]
     Active Substance: OCRELIZUMAB
     Dosage: 07/AUG/2017, 28/AUG/2017, 05/FEB/2018, 06/AUG/2018, 11/FEB/2019, 26/AUG/2019
     Route: 042

REACTIONS (17)
  - Muscle spasms [Recovered/Resolved]
  - Multiple sclerosis relapse [Recovered/Resolved]
  - Fall [Unknown]
  - Memory impairment [Unknown]
  - Menorrhagia [Recovered/Resolved]
  - Micturition urgency [Not Recovered/Not Resolved]
  - Weight increased [Not Recovered/Not Resolved]
  - Bipolar I disorder [Recovering/Resolving]
  - Gait disturbance [Not Recovered/Not Resolved]
  - Taste disorder [Recovering/Resolving]
  - Pollakiuria [Recovering/Resolving]
  - Gait inability [Unknown]
  - Pain [Recovered/Resolved]
  - Uterine leiomyoma [Unknown]
  - Cervical vertebral fracture [Not Recovered/Not Resolved]
  - Urinary tract infection [Recovering/Resolving]
  - Anxiety [Recovering/Resolving]

NARRATIVE: CASE EVENT DATE: 201709
